FAERS Safety Report 7658752-3 (Version None)
Quarter: 2011Q3

REPORT INFORMATION
  Report Type: 
  Country: None (occurrence: None)
  Receive Date: 20110804
  Receipt Date: 20110804
  Transmission Date: 20111222
  Serious: No
  Sender: FDA-Public Use
  Company Number: None

PATIENT
  Sex: Female

DRUGS (1)
  1. AVONEX [Suspect]
     Indication: MULTIPLE SCLEROSIS
     Dosage: SEE W5 WEEKLY IM
     Route: 030
     Dates: start: 20110719, end: 20110727

REACTIONS (2)
  - MAJOR DEPRESSION [None]
  - PAIN [None]
